FAERS Safety Report 9585830 (Version 1)
Quarter: 2013Q4

REPORT INFORMATION
  Report Type: Spontaneous
  Country: US (occurrence: None)
  Receive Date: 20131001
  Receipt Date: 20131001
  Transmission Date: 20140711
  Serious: Yes (Other)
  Sender: FDA-Public Use
  Company Number: 2013-US-001130

PATIENT
  Sex: Female

DRUGS (1)
  1. XYREM [Suspect]
     Indication: NARCOLEPSY
     Route: 048
     Dates: start: 20120524, end: 2012

REACTIONS (6)
  - Victim of sexual abuse [None]
  - Insomnia [None]
  - Enuresis [None]
  - Headache [None]
  - Abnormal dreams [None]
  - Sleep paralysis [None]
